FAERS Safety Report 11463235 (Version 3)
Quarter: 2015Q3

REPORT INFORMATION
  Report Type: Spontaneous
  Country: JP (occurrence: JP)
  Receive Date: 20150905
  Receipt Date: 20150918
  Transmission Date: 20151125
  Serious: Yes (Life-Threatening, Hospitalization, Other)
  Sender: FDA-Public Use
  Company Number: JP-BRISTOL-MYERS SQUIBB COMPANY-BMS-2015-054469

PATIENT
  Age: 51 Year
  Sex: Male

DRUGS (4)
  1. ERBITUX [Suspect]
     Active Substance: CETUXIMAB
     Indication: OROPHARYNGEAL CANCER
     Dosage: 400 MG/M2, QD
     Route: 041
     Dates: start: 20150728, end: 20150728
  2. ERBITUX [Suspect]
     Active Substance: CETUXIMAB
     Dosage: 250 MG/M2, QD
     Route: 041
     Dates: start: 20150804, end: 20150804
  3. CDDP [Suspect]
     Active Substance: CISPLATIN
     Indication: OROPHARYNGEAL CANCER
     Dosage: 75 MG/M2, QD
     Route: 041
     Dates: start: 20150728, end: 20150728
  4. DOCETAXEL. [Suspect]
     Active Substance: DOCETAXEL
     Indication: OROPHARYNGEAL CANCER
     Dosage: 75 MG/M2, QD
     Route: 041
     Dates: start: 20150728, end: 20150728

REACTIONS (5)
  - Disseminated intravascular coagulation [Recovered/Resolved]
  - Septic shock [Recovered/Resolved]
  - Febrile neutropenia [Not Recovered/Not Resolved]
  - Diarrhoea [Recovered/Resolved]
  - Decreased appetite [Unknown]

NARRATIVE: CASE EVENT DATE: 20150806
